FAERS Safety Report 9051059 (Version 2)
Quarter: 2013Q1

REPORT INFORMATION
  Report Type: Spontaneous
  Country: SE (occurrence: SE)
  Receive Date: 20130205
  Receipt Date: 20130311
  Transmission Date: 20140127
  Serious: Yes (Hospitalization)
  Sender: FDA-Public Use
  Company Number: SE-NOVOPROD-369848

PATIENT
  Age: 30 Year
  Sex: Female

DRUGS (2)
  1. LEVEMIR [Suspect]
     Indication: TYPE 1 DIABETES MELLITUS
     Dosage: UNKNOWN
     Route: 065
  2. HUMALOG [Concomitant]
     Route: 065

REACTIONS (5)
  - Disturbance in attention [Recovered/Resolved]
  - Dizziness [Recovered/Resolved]
  - Fatigue [Recovered/Resolved]
  - Headache [Recovered/Resolved]
  - Nausea [Recovered/Resolved]
